FAERS Safety Report 13603792 (Version 1)
Quarter: 2017Q2

REPORT INFORMATION
  Report Type: Spontaneous
  Country: SE (occurrence: SE)
  Receive Date: 20170602
  Receipt Date: 20170602
  Transmission Date: 20170830
  Serious: Yes (Other)
  Sender: FDA-Public Use
  Company Number: SE-JNJFOC-20170527554

PATIENT
  Age: 73 Year
  Sex: Female

DRUGS (4)
  1. IPREN [Suspect]
     Active Substance: IBUPROFEN
     Route: 065
  2. IPREN [Suspect]
     Active Substance: IBUPROFEN
     Indication: TENDONITIS
     Route: 065
     Dates: start: 201703, end: 20170425
  3. ARCOXIA [Suspect]
     Active Substance: ETORICOXIB
     Indication: TENDONITIS
     Route: 065
     Dates: start: 201703, end: 20170425
  4. CANDESARTAN CILEXETIL AND HYDROCHLOROTHIAZIDE [Concomitant]
     Active Substance: CANDESARTAN CILEXETIL\HYDROCHLOROTHIAZIDE
     Indication: PRODUCT USED FOR UNKNOWN INDICATION
     Route: 065

REACTIONS (1)
  - Acute kidney injury [Recovered/Resolved]

NARRATIVE: CASE EVENT DATE: 201704
